FAERS Safety Report 5025168-8 (Version None)
Quarter: 2006Q2

REPORT INFORMATION
  Report Type: 
  Country: None (occurrence: None)
  Receive Date: 20060613
  Receipt Date: 20060608
  Transmission Date: 20061013
  Serious: Yes (Other)
  Sender: FDA-Public Use
  Company Number: US-GLAXOSMITHKLINE-A0608356A

PATIENT
  Sex: Male

DRUGS (6)
  1. PAXIL [Suspect]
     Dosage: 40MG PER DAY
     Route: 048
  2. NORCO [Concomitant]
  3. ATACAND [Concomitant]
  4. HYDROCHLOROTHIAZIDE [Concomitant]
  5. SOMA [Concomitant]
  6. CLONAZEPAM [Concomitant]

REACTIONS (3)
  - AGGRESSION [None]
  - INJURY [None]
  - NEGATIVE THOUGHTS [None]
